FAERS Safety Report 10810645 (Version 1)
Quarter: 2015Q1

REPORT INFORMATION
  Report Type: Spontaneous
  Country: US (occurrence: None)
  Receive Date: 20150212
  Receipt Date: 20150212
  Transmission Date: 20150721
  Serious: Yes (Hospitalization)
  Sender: FDA-Public Use
  Company Number: UTC-046497

PATIENT
  Age: 52 Year
  Sex: Female
  Weight: 61.2 kg

DRUGS (3)
  1. REMODULIN [Suspect]
     Active Substance: TREPROSTINIL
     Indication: PULMONARY ARTERIAL HYPERTENSION
     Dosage: 0.124 UG/KG, CONTINUING, IV DRIP
     Route: 041
     Dates: start: 20080703
  2. REVATIO (SILDENAFIL CITRATE) [Concomitant]
  3. TRACLEER [Concomitant]
     Active Substance: BOSENTAN\BOSENTAN MONOHYDRATE

REACTIONS (2)
  - Catheter site extravasation [None]
  - Drug dose omission [None]

NARRATIVE: CASE EVENT DATE: 201401
